FAERS Safety Report 4564527-4 (Version None)
Quarter: 2005Q1

REPORT INFORMATION
  Report Type: 
  Country: None (occurrence: None)
  Receive Date: 20050128
  Receipt Date: 20050114
  Transmission Date: 20050727
  Serious: Yes (Hospitalization)
  Sender: FDA-Public Use
  Company Number: NSADSS2002040624

PATIENT
  Sex: Male
  Weight: 90.72 kg

DRUGS (18)
  1. REMICADE [Suspect]
     Route: 041
     Dates: start: 20020501
  2. REMICADE [Suspect]
     Indication: RHEUMATOID ARTHRITIS
     Route: 041
     Dates: start: 20020501
  3. PREDNISONE [Suspect]
     Indication: RHEUMATOID ARTHRITIS
  4. MOBIC [Concomitant]
  5. HYDROXYCHLOROQUINE SULFATE [Concomitant]
  6. FOSAMAX [Concomitant]
  7. ADVAIR DISKUS 100/50 [Concomitant]
  8. ADVAIR DISKUS 100/50 [Concomitant]
  9. ALBUTEROL [Concomitant]
  10. MULTI-VITAMINS [Concomitant]
  11. MULTI-VITAMINS [Concomitant]
  12. MULTI-VITAMINS [Concomitant]
  13. MULTI-VITAMINS [Concomitant]
  14. MULTI-VITAMINS [Concomitant]
  15. MULTI-VITAMINS [Concomitant]
  16. MULTI-VITAMINS [Concomitant]
  17. MULTI-VITAMINS [Concomitant]
  18. CALCIUM GLUCONATE [Concomitant]

REACTIONS (25)
  - ABSCESS [None]
  - CELLULITIS [None]
  - CHEST PAIN [None]
  - CHILLS [None]
  - COLONIC POLYP [None]
  - DIARRHOEA [None]
  - DIZZINESS [None]
  - DYSPHONIA [None]
  - DYSPNOEA [None]
  - HEADACHE [None]
  - HYPERHIDROSIS [None]
  - HYPERSENSITIVITY [None]
  - MALAISE [None]
  - MYOPATHY [None]
  - OVERDOSE [None]
  - PALPITATIONS [None]
  - PLEURAL EFFUSION [None]
  - PYREXIA [None]
  - SKIN DISCOLOURATION [None]
  - THERAPEUTIC RESPONSE DECREASED [None]
  - TOOTH ABSCESS [None]
  - TREMOR [None]
  - VISION BLURRED [None]
  - VOMITING [None]
  - WEIGHT INCREASED [None]
